FAERS Safety Report 8639592 (Version 24)
Quarter: 2015Q3

REPORT INFORMATION
  Report Type: Report from Study
  Country: CA (occurrence: CA)
  Receive Date: 20120627
  Receipt Date: 20150910
  Transmission Date: 20151125
  Serious: Yes (Hospitalization, Other)
  Sender: FDA-Public Use
  Company Number: CA-ROCHE-1081091

PATIENT
  Age: 57 Year
  Sex: Male
  Weight: 64 kg

DRUGS (13)
  1. XARELTO [Concomitant]
     Active Substance: RIVAROXABAN
  2. ACTEMRA [Suspect]
     Active Substance: TOCILIZUMAB
     Dosage: DOSE INCREASED
     Route: 042
     Dates: start: 20120301
  3. PLAQUENIL [Concomitant]
     Active Substance: HYDROXYCHLOROQUINE SULFATE
  4. GLYBURIDE. [Concomitant]
     Active Substance: GLYBURIDE
  5. ATORVASTATIN [Concomitant]
     Active Substance: ATORVASTATIN
  6. ASAPHEN [Concomitant]
     Active Substance: ASPIRIN
  7. IRON SULFATE [Concomitant]
     Active Substance: FERROUS SULFATE ANHYDROUS
  8. ACTEMRA [Suspect]
     Active Substance: TOCILIZUMAB
     Indication: RHEUMATOID ARTHRITIS
     Route: 042
     Dates: start: 20111206
  9. ASA [Concomitant]
     Active Substance: ASPIRIN
  10. AMLODIPINE [Concomitant]
     Active Substance: AMLODIPINE BESYLATE
  11. ATENOLOL. [Concomitant]
     Active Substance: ATENOLOL
  12. ACTEMRA [Suspect]
     Active Substance: TOCILIZUMAB
     Dosage: DOSE INCREASED
     Route: 042
     Dates: start: 20120829
  13. PREDNISONE. [Concomitant]
     Active Substance: PREDNISONE

REACTIONS (21)
  - Oral herpes [Unknown]
  - Blood pressure increased [Unknown]
  - Heart rate decreased [Unknown]
  - Influenza like illness [Recovering/Resolving]
  - Cerebrovascular accident [Unknown]
  - Hyperthyroidism [Not Recovered/Not Resolved]
  - Heart rate decreased [Unknown]
  - Disease progression [Not Recovered/Not Resolved]
  - Arrhythmia [Recovering/Resolving]
  - Blood pressure increased [Unknown]
  - Syncope [Recovered/Resolved]
  - Weight fluctuation [Not Recovered/Not Resolved]
  - Productive cough [Recovered/Resolved]
  - Nasal congestion [Recovering/Resolving]
  - Infusion related reaction [Unknown]
  - Muscle rigidity [Not Recovered/Not Resolved]
  - Atrial fibrillation [Unknown]
  - Visual field defect [Not Recovered/Not Resolved]
  - Arthralgia [Unknown]
  - Arthritis [Not Recovered/Not Resolved]
  - Nasopharyngitis [Recovered/Resolved]

NARRATIVE: CASE EVENT DATE: 20120617
